FAERS Safety Report 12302047 (Version 2)
Quarter: 2016Q3

REPORT INFORMATION
  Report Type: Spontaneous
  Country: US (occurrence: US)
  Receive Date: 20160425
  Receipt Date: 20160708
  Transmission Date: 20161109
  Serious: No
  Sender: FDA-Public Use
  Company Number: US-PFIZER INC-2016221684

PATIENT
  Age: 48 Year
  Sex: Male
  Weight: 63.49 kg

DRUGS (2)
  1. SUTENT [Suspect]
     Active Substance: SUNITINIB MALATE
     Indication: PANCREATIC CARCINOMA METASTATIC
     Dosage: 37.5 MG CAPSULES, DAILY 1-28 Q 42 DAYS
     Route: 048
     Dates: start: 20150318
  2. SUTENT [Suspect]
     Active Substance: SUNITINIB MALATE
     Indication: PANCREATIC CARCINOMA
     Dosage: 37.5 MG, DAILY
     Route: 048
     Dates: start: 20150318

REACTIONS (2)
  - Disease progression [Unknown]
  - Pancreatic carcinoma metastatic [Unknown]
